FAERS Safety Report 9029723 (Version 5)
Quarter: 2014Q1

REPORT INFORMATION
  Report Type: Spontaneous
  Country: US (occurrence: US)
  Receive Date: 20130124
  Receipt Date: 20140205
  Transmission Date: 20141002
  Serious: Yes (Hospitalization, Other)
  Sender: FDA-Public Use
  Company Number: US-009507513-1301USA011223

PATIENT
  Sex: Female
  Weight: 77.98 kg

DRUGS (5)
  1. FOSAMAX [Suspect]
     Indication: OSTEOPENIA
     Dosage: 10 MG, UNK
     Route: 048
     Dates: start: 199601, end: 200201
  2. FOSAMAX [Suspect]
     Dosage: 70 MG, UNK
     Route: 048
     Dates: start: 200201, end: 200809
  3. ALENDRONATE SODIUM [Suspect]
     Indication: OSTEOPENIA
     Dosage: 70 MG, UNK
     Route: 048
     Dates: start: 200811, end: 201012
  4. CALCIUM (UNSPECIFIED) [Concomitant]
     Indication: OSTEOPENIA
  5. VITAMIN D (UNSPECIFIED) [Concomitant]
     Indication: OSTEOPENIA

REACTIONS (39)
  - Basal cell carcinoma [Unknown]
  - Deafness [Unknown]
  - Femur fracture [Recovered/Resolved]
  - Hypercholesterolaemia [Unknown]
  - Goitre [Unknown]
  - Herpes zoster [Unknown]
  - Osteoarthritis [Unknown]
  - Fibrocystic breast disease [Unknown]
  - Joint stiffness [Unknown]
  - Incontinence [Unknown]
  - Pelvic pain [Unknown]
  - Dry mouth [Unknown]
  - Terminal insomnia [Unknown]
  - Gait disturbance [Unknown]
  - Rotator cuff syndrome [Recovering/Resolving]
  - Spinal osteoarthritis [Unknown]
  - Neuropathy peripheral [Unknown]
  - Hypertension [Unknown]
  - Osteoarthritis [Unknown]
  - Periodontal disease [Unknown]
  - Crystal arthropathy [Unknown]
  - Fatigue [Unknown]
  - Synovitis [Unknown]
  - Nasal neoplasm [Unknown]
  - Bone neoplasm [Unknown]
  - Muscle strain [Recovered/Resolved]
  - Bursitis [Unknown]
  - Joint effusion [Unknown]
  - Bone marrow oedema [Unknown]
  - Body height decreased [Unknown]
  - Oedema peripheral [Unknown]
  - Constipation [Unknown]
  - Arthralgia [Recovering/Resolving]
  - Pain in extremity [Recovering/Resolving]
  - Muscle spasms [Unknown]
  - Muscle spasms [Recovered/Resolved]
  - No therapeutic response [Unknown]
  - Gastrooesophageal reflux disease [Unknown]
  - Arthralgia [Recovered/Resolved]
